FAERS Safety Report 21456279 (Version 1)
Quarter: 2022Q4

REPORT INFORMATION
  Report Type: Spontaneous
  Country: CA (occurrence: CA)
  Receive Date: 20221014
  Receipt Date: 20221014
  Transmission Date: 20230113
  Serious: Yes (Other)
  Sender: FDA-Public Use
  Company Number: CA-SAMSUNG BIOEPIS-SB-2022-25765

PATIENT
  Sex: Male

DRUGS (6)
  1. INFLIXIMAB [Suspect]
     Active Substance: INFLIXIMAB
     Indication: X-linked lymphoproliferative syndrome
     Dosage: UNKNOWN, BETWEEN 5 MG/KG AND 10 MG/KG
     Route: 065
  2. ETANERCEPT [Suspect]
     Active Substance: ETANERCEPT
     Indication: X-linked lymphoproliferative syndrome
     Dosage: UNKNOWN, (BETWEEN 0 MG/KG AND 5 MG/KG)
     Route: 065
  3. PREDNISONE [Concomitant]
     Active Substance: PREDNISONE
     Indication: X-linked lymphoproliferative syndrome
     Route: 065
  4. PREDNISONE [Concomitant]
     Active Substance: PREDNISONE
     Dosage: WEAN, UNKNOWN
     Route: 065
  5. MESALAMINE [Concomitant]
     Active Substance: MESALAMINE
     Indication: X-linked lymphoproliferative syndrome
     Dosage: UNKNOWN, (BETWEEN 15 MG/KG AND 100 MG/KG)
     Route: 065
  6. BUDESONIDE [Concomitant]
     Active Substance: BUDESONIDE
     Indication: X-linked lymphoproliferative syndrome
     Route: 065

REACTIONS (13)
  - Status epilepticus [Unknown]
  - Growth retardation [Unknown]
  - Staphylococcal abscess [Unknown]
  - Cellulitis [Unknown]
  - Pneumonia streptococcal [Unknown]
  - Cholangitis acute [Unknown]
  - Gastrointestinal haemorrhage [Unknown]
  - Colitis [Unknown]
  - Secondary adrenocortical insufficiency [Unknown]
  - Osteoporosis [Unknown]
  - Pyrexia [Recovered/Resolved]
  - Drug ineffective for unapproved indication [Unknown]
  - Off label use [Unknown]
